FAERS Safety Report 8592996-1 (Version None)
Quarter: 2012Q3

REPORT INFORMATION
  Report Type: 
  Country: None (occurrence: None)
  Receive Date: 20120814
  Receipt Date: 20120806
  Transmission Date: 20120928
  Serious: Yes (Hospitalization, Other)
  Sender: FDA-Public Use
  Company Number: US-009507513-1111USA00441

PATIENT

DRUGS (2)
  1. PENTOXIFYLLINE [Concomitant]
     Dosage: UNK
     Dates: start: 19950101
  2. FOSAMAX [Suspect]
     Indication: OSTEOPOROSIS
     Dosage: 70 MG, UNK
     Route: 048
     Dates: start: 20040101, end: 20080901

REACTIONS (6)
  - FRACTURE [None]
  - DEVICE FAILURE [None]
  - SPINAL FRACTURE [None]
  - DEPRESSION [None]
  - FEMUR FRACTURE [None]
  - FALL [None]
